FAERS Safety Report 8917582 (Version 2)
Quarter: 2013Q1

REPORT INFORMATION
  Report Type: Spontaneous
  Country: US (occurrence: US)
  Receive Date: 20121119
  Receipt Date: 20130114
  Transmission Date: 20140127
  Serious: No
  Sender: FDA-Public Use
  Company Number: US-009507513-1211USA006938

PATIENT
  Sex: Female
  Weight: 76.64 kg

DRUGS (6)
  1. IMPLANON [Suspect]
     Indication: CONTRACEPTION
     Dosage: UNK
     Dates: start: 20121113, end: 20121115
  2. VALIUM [Concomitant]
  3. FOLIC ACID [Concomitant]
  4. PRILOSEC [Concomitant]
  5. ZOLOFT [Concomitant]
  6. ALBUTEROL [Concomitant]

REACTIONS (4)
  - Implant site pruritus [Recovering/Resolving]
  - Injection site erythema [Recovering/Resolving]
  - Injection site swelling [Recovering/Resolving]
  - Pruritus [Recovering/Resolving]
